FAERS Safety Report 5897123-7 (Version None)
Quarter: 2008Q3

REPORT INFORMATION
  Report Type: 
  Country: None (occurrence: None)
  Receive Date: 20080924
  Receipt Date: 20080522
  Transmission Date: 20090109
  Serious: Yes (Other)
  Sender: FDA-Public Use
  Company Number: US-ASTRAZENECA-2008UW10427

PATIENT
  Age: 23 Year
  Sex: Male

DRUGS (10)
  1. SEROQUEL [Suspect]
     Indication: SCHIZOPHRENIA
     Route: 048
  2. SEROQUEL [Suspect]
     Indication: BIPOLAR DISORDER
     Route: 048
  3. ALBUTEROL [Concomitant]
  4. ADVAIR DISKUS 100/50 [Concomitant]
  5. NASONEX [Concomitant]
  6. ALLEGRA [Concomitant]
  7. EPIPEN [Concomitant]
  8. PAXIL [Concomitant]
  9. TYLENOL W/ CODEINE NO. 3 [Concomitant]
  10. BALACET [Concomitant]

REACTIONS (1)
  - PRIAPISM [None]
